FAERS Safety Report 23090457 (Version 1)
Quarter: 2023Q4

REPORT INFORMATION
  Report Type: Report from Study
  Country: JP (occurrence: JP)
  Receive Date: 20231020
  Receipt Date: 20231020
  Transmission Date: 20240110
  Serious: Yes (Hospitalization)
  Sender: FDA-Public Use
  Company Number: JP-PFIZER INC-202300237185

PATIENT
  Age: 48 Year
  Sex: Female
  Weight: 47.5 kg

DRUGS (3)
  1. ELRANATAMAB [Suspect]
     Active Substance: ELRANATAMAB
     Indication: Plasma cell myeloma
     Dosage: 12.0 MG, ONCE
     Route: 058
     Dates: start: 20230522, end: 20230522
  2. ELRANATAMAB [Suspect]
     Active Substance: ELRANATAMAB
     Dosage: 32.0 MG, ONCE
     Route: 058
     Dates: start: 20230529, end: 20230529
  3. ELRANATAMAB [Suspect]
     Active Substance: ELRANATAMAB
     Dosage: 32.0 MG, ONCE
     Route: 058
     Dates: start: 20230613, end: 20230613

REACTIONS (1)
  - Dyskinesia [Recovered/Resolved]

NARRATIVE: CASE EVENT DATE: 20230629
